FAERS Safety Report 24935498 (Version 3)
Quarter: 2025Q3

REPORT INFORMATION
  Report Type: Report from Study
  Country: US (occurrence: US)
  Receive Date: 20250206
  Receipt Date: 20250825
  Transmission Date: 20251021
  Serious: Yes (Hospitalization)
  Sender: ABBVIE
  Company Number: US-ABBVIE-6119125

PATIENT
  Age: 44 Year
  Sex: Male

DRUGS (2)
  1. IMBRUVICA [Suspect]
     Active Substance: IBRUTINIB
     Indication: Mantle cell lymphoma
     Dosage: TAKING TWO 280 MG TAB ONCE DAILY
     Route: 048
     Dates: start: 20241024, end: 2025
  2. IMBRUVICA [Suspect]
     Active Substance: IBRUTINIB
     Indication: Mantle cell lymphoma
     Route: 048
     Dates: start: 2025

REACTIONS (8)
  - Thrombosis [Unknown]
  - Cellulitis [Unknown]
  - COVID-19 [Unknown]
  - Pneumonia [Unknown]
  - Bacterial infection [Unknown]
  - Anger [Unknown]
  - Depression [Unknown]
  - Frustration tolerance decreased [Unknown]

NARRATIVE: CASE EVENT DATE: 20240101
